FAERS Safety Report 10463490 (Version 1)
Quarter: 2014Q3

REPORT INFORMATION
  Report Type: Spontaneous
  Country: US (occurrence: None)
  Receive Date: 20140918
  Receipt Date: 20140918
  Transmission Date: 20150326
  Serious: Yes (Hospitalization)
  Sender: FDA-Public Use
  Company Number: None

PATIENT
  Age: 88 Year
  Sex: Male
  Weight: 55.3 kg

DRUGS (1)
  1. ERBITUX [Suspect]
     Active Substance: CETUXIMAB
     Dates: end: 20140814

REACTIONS (5)
  - Dehydration [None]
  - Pneumonia [None]
  - Cellulitis [None]
  - Malnutrition [None]
  - General physical health deterioration [None]

NARRATIVE: CASE EVENT DATE: 20140828
